FAERS Safety Report 25067981 (Version 2)
Quarter: 2025Q2

REPORT INFORMATION
  Report Type: Spontaneous
  Country: US (occurrence: US)
  Receive Date: 20250312
  Receipt Date: 20250505
  Transmission Date: 20250717
  Serious: Yes (Other)
  Sender: MYLAN
  Company Number: US-MYLANLABS-2025M1020516

PATIENT
  Sex: Female
  Weight: 99.79 kg

DRUGS (4)
  1. LIPITOR [Suspect]
     Active Substance: ATORVASTATIN CALCIUM
     Indication: Low density lipoprotein abnormal
     Dosage: 1 DOSAGE FORM, QD (1 PILL A DAY)
     Dates: start: 200901, end: 200907
  2. LIPITOR [Suspect]
     Active Substance: ATORVASTATIN CALCIUM
     Dosage: 1 DOSAGE FORM, QD (1 PILL A DAY)
     Route: 065
     Dates: start: 200901, end: 200907
  3. LIPITOR [Suspect]
     Active Substance: ATORVASTATIN CALCIUM
     Dosage: 1 DOSAGE FORM, QD (1 PILL A DAY)
     Route: 065
     Dates: start: 200901, end: 200907
  4. LIPITOR [Suspect]
     Active Substance: ATORVASTATIN CALCIUM
     Dosage: 1 DOSAGE FORM, QD (1 PILL A DAY)
     Dates: start: 200901, end: 200907

REACTIONS (1)
  - Drug-induced liver injury [Recovered/Resolved]
